FAERS Safety Report 7938329-2 (Version None)
Quarter: 2011Q4

REPORT INFORMATION
  Report Type: 
  Country: None (occurrence: None)
  Receive Date: 20111123
  Receipt Date: 20111115
  Transmission Date: 20120403
  Serious: Yes (Death, Life-Threatening, Other)
  Sender: FDA-Public Use
  Company Number: US-BAXTER-2010BH003459

PATIENT
  Age: 58 Year
  Sex: Female
  Weight: 138 kg

DRUGS (75)
  1. HEPARIN SODIUM INJECTION [Suspect]
     Route: 042
     Dates: start: 20071101, end: 20071201
  2. HEPARIN SODIUM INJECTION [Suspect]
     Route: 065
     Dates: start: 20071101, end: 20080301
  3. HEPARIN SODIUM INJECTION [Suspect]
     Route: 042
     Dates: start: 20071214, end: 20071214
  4. HEPARIN SODIUM INJECTION [Suspect]
     Route: 058
     Dates: start: 20071209, end: 20071210
  5. HEPARIN SODIUM INJECTION [Suspect]
     Route: 042
     Dates: start: 20071101, end: 20071201
  6. METFORMIN [Concomitant]
     Indication: PRODUCT USED FOR UNKNOWN INDICATION
     Route: 065
  7. HEPARIN SODIUM INJECTION [Suspect]
     Route: 058
     Dates: start: 20071209, end: 20071210
  8. HEPARIN SODIUM INJECTION [Suspect]
     Route: 042
     Dates: start: 20071228, end: 20071228
  9. HEPARIN SODIUM INJECTION [Suspect]
     Route: 042
     Dates: start: 20071228, end: 20071228
  10. PROPOFOL [Concomitant]
     Indication: PRODUCT USED FOR UNKNOWN INDICATION
     Route: 041
  11. DIGOXIN [Concomitant]
     Indication: PRODUCT USED FOR UNKNOWN INDICATION
     Route: 048
  12. PRILOSEC [Concomitant]
     Indication: PRODUCT USED FOR UNKNOWN INDICATION
     Route: 048
  13. LOPRESSOR [Concomitant]
     Indication: ATRIAL FIBRILLATION
     Route: 042
  14. POTASSIUM PHOSPHATES [Concomitant]
     Indication: PRODUCT USED FOR UNKNOWN INDICATION
     Route: 048
  15. HEPARIN SODIUM 5,000 UNITS IN DEXTROSE 5% [Suspect]
     Indication: DEEP VEIN THROMBOSIS
     Route: 042
     Dates: start: 20071210, end: 20071211
  16. HEPARIN SODIUM INJECTION [Suspect]
     Indication: INTRAVENOUS CATHETER MANAGEMENT
     Route: 042
     Dates: start: 20071111, end: 20071113
  17. HEPARIN SODIUM INJECTION [Suspect]
     Route: 065
     Dates: start: 20071101, end: 20080301
  18. HEPARIN SODIUM INJECTION [Suspect]
     Route: 058
     Dates: start: 20071227, end: 20071228
  19. HEPARIN SODIUM INJECTION [Suspect]
     Route: 042
     Dates: start: 20071101, end: 20071201
  20. HYDRALAZINE HCL [Concomitant]
     Indication: PRODUCT USED FOR UNKNOWN INDICATION
     Route: 065
  21. AMIODARONE HCL [Concomitant]
     Indication: PRODUCT USED FOR UNKNOWN INDICATION
     Route: 065
  22. LANTUS [Concomitant]
     Indication: DIABETES MELLITUS
     Route: 058
     Dates: start: 20071101
  23. AMBIEN [Concomitant]
     Indication: SLEEP DISORDER
     Route: 048
  24. LABETALOL HCL [Concomitant]
     Indication: PRODUCT USED FOR UNKNOWN INDICATION
     Route: 065
  25. HEPARIN SODIUM 5,000 UNITS IN DEXTROSE 5% [Suspect]
     Route: 042
     Dates: start: 20080221
  26. HEPARIN SODIUM 5,000 UNITS IN DEXTROSE 5% [Suspect]
     Route: 042
     Dates: start: 20080221
  27. HEPARIN SODIUM INJECTION [Suspect]
     Route: 065
     Dates: start: 20071101, end: 20080301
  28. WARFARIN SODIUM [Concomitant]
     Indication: CEREBROVASCULAR ACCIDENT
     Route: 048
     Dates: start: 20071101
  29. ATIVAN [Concomitant]
     Indication: ANXIETY
     Route: 048
     Dates: start: 20071101
  30. ALBUTEROL [Concomitant]
     Indication: PRODUCT USED FOR UNKNOWN INDICATION
     Route: 055
  31. ADALAT [Concomitant]
     Indication: PRODUCT USED FOR UNKNOWN INDICATION
     Route: 065
  32. SYNERCID [Concomitant]
     Indication: ENTEROCOCCAL INFECTION
     Route: 065
     Dates: start: 20080104, end: 20080106
  33. PHENYLEPHRINE HCL [Concomitant]
     Indication: PRODUCT USED FOR UNKNOWN INDICATION
     Route: 065
  34. HEPARIN SODIUM 5,000 UNITS IN DEXTROSE 5% [Suspect]
     Route: 042
     Dates: start: 20071228, end: 20080103
  35. HEPARIN SODIUM INJECTION [Suspect]
     Indication: CEREBROVASCULAR ACCIDENT
     Route: 042
     Dates: start: 20071111, end: 20071113
  36. HEPARIN SODIUM INJECTION [Suspect]
     Route: 042
     Dates: start: 20071228, end: 20071228
  37. LINEZOLID [Concomitant]
     Indication: PRODUCT USED FOR UNKNOWN INDICATION
     Route: 065
  38. ERYTHROPOIETIN [Concomitant]
     Indication: PRODUCT USED FOR UNKNOWN INDICATION
     Route: 058
  39. PHENERGAN [Concomitant]
     Indication: NAUSEA
     Route: 042
     Dates: start: 20071101
  40. NITROSTAT [Concomitant]
     Indication: CHEST PAIN
     Route: 060
  41. LISINOPRIL [Concomitant]
     Indication: PRODUCT USED FOR UNKNOWN INDICATION
     Route: 048
  42. TOPROL-XL [Concomitant]
     Indication: PRODUCT USED FOR UNKNOWN INDICATION
     Route: 048
  43. TRAZODONE HCL [Concomitant]
     Indication: INSOMNIA
     Route: 048
  44. NOVOLIN 70/30 [Concomitant]
     Indication: PRODUCT USED FOR UNKNOWN INDICATION
     Route: 058
  45. HUMIBID LA [Concomitant]
     Indication: PRODUCT USED FOR UNKNOWN INDICATION
     Route: 048
     Dates: start: 20071118, end: 20071120
  46. HEPARIN SODIUM 5,000 UNITS IN DEXTROSE 5% [Suspect]
     Route: 042
     Dates: start: 20071228, end: 20080103
  47. HEPARIN SODIUM INJECTION [Suspect]
     Indication: DEEP VEIN THROMBOSIS
     Route: 042
     Dates: start: 20071111, end: 20071113
  48. HEPARIN SODIUM INJECTION [Suspect]
     Route: 042
     Dates: start: 20071101, end: 20071201
  49. HEPARIN SODIUM INJECTION [Suspect]
     Route: 058
     Dates: start: 20071209, end: 20071210
  50. HEPARIN SODIUM INJECTION [Suspect]
     Route: 042
     Dates: start: 20071101, end: 20071201
  51. HEPARIN SODIUM INJECTION [Suspect]
     Route: 042
     Dates: start: 20071101, end: 20071201
  52. SIMVASTATIN [Concomitant]
     Indication: PRODUCT USED FOR UNKNOWN INDICATION
     Route: 048
  53. HEPARIN SODIUM 5,000 UNITS IN DEXTROSE 5% [Suspect]
     Indication: CEREBROVASCULAR ACCIDENT
     Route: 042
     Dates: start: 20071210, end: 20071211
  54. HEPARIN SODIUM 5,000 UNITS IN DEXTROSE 5% [Suspect]
     Route: 042
     Dates: start: 20071214, end: 20071227
  55. HEPARIN SODIUM 5,000 UNITS IN DEXTROSE 5% [Suspect]
     Route: 042
     Dates: start: 20071214, end: 20071227
  56. HEPARIN SODIUM INJECTION [Suspect]
     Route: 042
     Dates: start: 20071214, end: 20071214
  57. HEPARIN SODIUM INJECTION [Suspect]
     Route: 042
     Dates: start: 20071214, end: 20071214
  58. HEPARIN SODIUM INJECTION [Suspect]
     Route: 058
     Dates: start: 20071227, end: 20071228
  59. HEPARIN SODIUM INJECTION [Suspect]
     Route: 042
     Dates: start: 20071101, end: 20071201
  60. HEPARIN SODIUM INJECTION [Suspect]
     Route: 042
     Dates: start: 20071101, end: 20071201
  61. ISORDIL [Concomitant]
     Indication: PRODUCT USED FOR UNKNOWN INDICATION
     Route: 065
  62. ASPIRIN [Concomitant]
     Indication: PRODUCT USED FOR UNKNOWN INDICATION
     Route: 065
  63. FEOSOL [Concomitant]
     Indication: PRODUCT USED FOR UNKNOWN INDICATION
     Route: 065
  64. AMARYL [Concomitant]
     Indication: PRODUCT USED FOR UNKNOWN INDICATION
     Route: 048
     Dates: start: 20071101
  65. HEPARIN SODIUM INJECTION [Suspect]
     Route: 042
     Dates: start: 20071101, end: 20071201
  66. HEPARIN SODIUM INJECTION [Suspect]
     Route: 058
     Dates: start: 20071227, end: 20071228
  67. LASIX [Concomitant]
     Indication: PRODUCT USED FOR UNKNOWN INDICATION
     Route: 041
  68. PROTONIX [Concomitant]
     Indication: PRODUCT USED FOR UNKNOWN INDICATION
     Route: 042
  69. ANCEF [Concomitant]
     Indication: PRODUCT USED FOR UNKNOWN INDICATION
     Route: 065
  70. COREG [Concomitant]
     Indication: PRODUCT USED FOR UNKNOWN INDICATION
     Route: 065
  71. MILK OF MAGNESIA TAB [Concomitant]
     Indication: CONSTIPATION
     Route: 048
  72. HYDROCHLOROTHIAZIDE [Concomitant]
     Indication: PRODUCT USED FOR UNKNOWN INDICATION
     Route: 048
  73. TOPAMAX [Concomitant]
     Indication: PRODUCT USED FOR UNKNOWN INDICATION
     Route: 048
  74. CARDIZEM [Concomitant]
     Indication: ATRIAL FIBRILLATION
     Route: 042
     Dates: start: 20071104
  75. ULTRAM [Concomitant]
     Indication: PAIN
     Route: 048

REACTIONS (37)
  - SEPTIC SHOCK [None]
  - DISSEMINATED INTRAVASCULAR COAGULATION [None]
  - ACUTE PULMONARY OEDEMA [None]
  - EMBOLIC STROKE [None]
  - NAUSEA [None]
  - CARDIAC ARREST [None]
  - CARDIAC VALVE DISEASE [None]
  - RENAL FAILURE ACUTE [None]
  - CARDIAC FAILURE CONGESTIVE [None]
  - ATRIAL FIBRILLATION [None]
  - ABASIA [None]
  - SPEECH DISORDER [None]
  - VISUAL IMPAIRMENT [None]
  - THROMBOCYTOPENIA [None]
  - PNEUMONIA [None]
  - HYPOPHAGIA [None]
  - ACUTE RESPIRATORY FAILURE [None]
  - CARDIOGENIC SHOCK [None]
  - ABDOMINAL PAIN UPPER [None]
  - URTICARIA [None]
  - MENTAL STATUS CHANGES [None]
  - BACTERAEMIA [None]
  - SEPSIS [None]
  - VENTRICULAR FIBRILLATION [None]
  - ORGAN FAILURE [None]
  - CORONARY ARTERY OCCLUSION [None]
  - DEEP VEIN THROMBOSIS [None]
  - URINARY TRACT INFECTION [None]
  - ANAEMIA [None]
  - ERYTHEMA [None]
  - BLOOD PRESSURE DECREASED [None]
  - PYREXIA [None]
  - PHARYNGEAL OEDEMA [None]
  - ENDOCARDITIS [None]
  - MYOCARDIAL INFARCTION [None]
  - ASTHENIA [None]
  - VOMITING [None]
